FAERS Safety Report 5676688-4 (Version None)
Quarter: 2008Q1

REPORT INFORMATION
  Report Type: 
  Country: None (occurrence: None)
  Receive Date: 20080321
  Receipt Date: 20080321
  Transmission Date: 20080703
  Serious: Yes (Life-Threatening)
  Sender: FDA-Public Use
  Company Number: None

PATIENT
  Age: 77 Year
  Sex: Male
  Weight: 129 kg

DRUGS (1)
  1. IOPROMIDE [Suspect]
     Dosage: 230ML ONCE IV
     Route: 042
     Dates: start: 20080314, end: 20080314

REACTIONS (4)
  - ANAPHYLACTIC REACTION [None]
  - CARDIAC ARREST [None]
  - RASH [None]
  - VENTRICULAR FIBRILLATION [None]
